FAERS Safety Report 25717577 (Version 2)
Quarter: 2025Q4

REPORT INFORMATION
  Report Type: Spontaneous
  Country: US (occurrence: US)
  Receive Date: 20250822
  Receipt Date: 20251006
  Transmission Date: 20260117
  Serious: No
  Sender: BRISTOL-MYERS SQUIBB COMPANY
  Company Number: US-BRISTOL-MYERS SQUIBB COMPANY-2025-117218

PATIENT
  Age: 62 Year
  Sex: Male
  Weight: 111.58 kg

DRUGS (2)
  1. POMALYST [Suspect]
     Active Substance: POMALIDOMIDE
     Indication: Plasma cell myeloma
  2. POMALYST [Suspect]
     Active Substance: POMALIDOMIDE
     Dosage: 4MG (1 CAPSULE) ORALLY DAILY

REACTIONS (2)
  - Blood pressure abnormal [Unknown]
  - Tremor [Not Recovered/Not Resolved]
